FAERS Safety Report 9614328 (Version 1)
Quarter: 2013Q4

REPORT INFORMATION
  Report Type: Spontaneous
  Country: KR (occurrence: KR)
  Receive Date: 20131011
  Receipt Date: 20131011
  Transmission Date: 20140711
  Serious: Yes (Other)
  Sender: FDA-Public Use
  Company Number: KR-JNJFOC-20131000685

PATIENT
  Sex: Male

DRUGS (2)
  1. ABIRATERONE ACETATE [Suspect]
     Indication: PROSTATE CANCER METASTATIC
     Route: 048
  2. PREDNISOLONE [Suspect]
     Indication: PROSTATE CANCER METASTATIC
     Route: 048

REACTIONS (7)
  - Prostatic specific antigen increased [Unknown]
  - Bone pain [Unknown]
  - Hypokalaemia [Unknown]
  - Fluid retention [Unknown]
  - Liver function test abnormal [Unknown]
  - Hypertension [Unknown]
  - Cardiac disorder [Unknown]
